FAERS Safety Report 9919252 (Version 2)
Quarter: 2014Q1

REPORT INFORMATION
  Report Type: Spontaneous
  Country: US (occurrence: US)
  Receive Date: 20140224
  Receipt Date: 20140307
  Transmission Date: 20141002
  Serious: No
  Sender: FDA-Public Use
  Company Number: US-009507513-1402USA008770

PATIENT
  Sex: Female

DRUGS (7)
  1. PEGINTRON [Suspect]
     Indication: HEPATITIS C
     Dosage: 0.4 ML, ONCE A WEEK
     Route: 058
     Dates: start: 20140131
  2. REBETOL [Suspect]
     Indication: HEPATITIS C
     Dosage: 2, BID (TWICE A DAY)
     Route: 048
     Dates: start: 20140131
  3. METFORMIN [Concomitant]
     Dosage: 850 MG, ONE UNIT BID
  4. PRINIVIL [Concomitant]
     Dosage: 10 MG 1 DF, QD
     Route: 048
  5. AMARYL [Concomitant]
     Dosage: 4 MG, ONE, BID
  6. LANTUS [Concomitant]
     Dosage: 10 UNITS AT HS
  7. TYLENOL [Concomitant]
     Dosage: 2 PILLS

REACTIONS (1)
  - Pain [Unknown]
